FAERS Safety Report 26068792 (Version 2)
Quarter: 2025Q4

REPORT INFORMATION
  Report Type: Spontaneous
  Country: JP (occurrence: JP)
  Receive Date: 20251120
  Receipt Date: 20251126
  Transmission Date: 20260117
  Serious: Yes (Hospitalization)
  Sender: UCB
  Company Number: JP-UCBJ-CD202515138UCBPHAPROD

PATIENT
  Age: 69 Year

DRUGS (1)
  1. ZILBRYSQ [Suspect]
     Active Substance: ZILUCOPLAN
     Indication: Myasthenia gravis
     Dosage: 23 MILLIGRAM, ONCE DAILY (QD)

REACTIONS (3)
  - Dehydration [Recovered/Resolved]
  - Nasopharyngitis [Unknown]
  - Injection site swelling [Not Recovered/Not Resolved]
